FAERS Safety Report 4706349-7 (Version None)
Quarter: 2005Q2

REPORT INFORMATION
  Report Type: 
  Country: None (occurrence: None)
  Receive Date: 20050629
  Receipt Date: 20050623
  Transmission Date: 20051028
  Serious: Yes (Other)
  Sender: FDA-Public Use
  Company Number: S05-USA-01984-01

PATIENT
  Age: 84 Year
  Sex: Female

DRUGS (5)
  1. CAMPRAL [Suspect]
     Indication: ALCOHOLISM
     Dosage: 666 MG TID; PO
     Route: 048
     Dates: start: 20050101, end: 20050101
  2. LIBRIUM [Suspect]
     Indication: MENTAL STATUS CHANGES
     Dates: start: 20050101, end: 20050101
  3. ALCOHOL [Suspect]
     Dates: end: 20050101
  4. AMITRIPTYLINE HCL [Concomitant]
  5. THIAMINE [Concomitant]

REACTIONS (11)
  - CONDITION AGGRAVATED [None]
  - DELIRIUM TREMENS [None]
  - DEMENTIA [None]
  - FALL [None]
  - GAMMA-GLUTAMYLTRANSFERASE INCREASED [None]
  - HALLUCINATION [None]
  - LETHARGY [None]
  - MENTAL STATUS CHANGES [None]
  - ORAL INTAKE REDUCED [None]
  - URINARY TRACT INFECTION [None]
  - WHITE BLOOD CELL COUNT INCREASED [None]
